FAERS Safety Report 17445395 (Version 1)
Quarter: 2020Q1

REPORT INFORMATION
  Report Type: Spontaneous
  Country: VN (occurrence: VN)
  Receive Date: 20200221
  Receipt Date: 20200221
  Transmission Date: 20200409
  Serious: Yes (Death)
  Sender: FDA-Public Use
  Company Number: VN-ASTRAZENECA-2020SE25593

PATIENT
  Age: 65 Year
  Sex: Male

DRUGS (3)
  1. SAVI IVABRADINE [Concomitant]
     Route: 048
     Dates: start: 20200204, end: 20200206
  2. BETALOC ZOK [Concomitant]
     Active Substance: METOPROLOL SUCCINATE
     Route: 048
     Dates: start: 20200204, end: 20200206
  3. TAGRISSO [Suspect]
     Active Substance: OSIMERTINIB
     Route: 048
     Dates: start: 20191016, end: 20200206

REACTIONS (2)
  - Heart rate increased [Fatal]
  - Dyspnoea [Fatal]
